FAERS Safety Report 4559144-6 (Version None)
Quarter: 2005Q2

REPORT INFORMATION
  Report Type: 
  Country: None (occurrence: None)
  Receive Date: 20050121
  Receipt Date: 20050121
  Transmission Date: 20051028
  Serious: No
  Sender: FDA-Public Use
  Company Number: None

PATIENT
  Sex: Male

DRUGS (2)
  1. WARFARIN SODIUM [Suspect]
  2. NONE [Suspect]

REACTIONS (2)
  - FOOD INTERACTION [None]
  - HAEMORRHAGE INTRACRANIAL [None]
